FAERS Safety Report 5883771-7 (Version None)
Quarter: 2008Q3

REPORT INFORMATION
  Report Type: 
  Country: None (occurrence: None)
  Receive Date: 20080915
  Receipt Date: 20080903
  Transmission Date: 20090109
  Serious: Yes (Death, Other)
  Sender: FDA-Public Use
  Company Number: DE-WYE-H05931008

PATIENT
  Sex: Male

DRUGS (9)
  1. CORDAREX [Suspect]
  2. DICLOFENAC SODIUM [Suspect]
     Dosage: UNKNOWN
     Route: 048
  3. DOXYCYCLINE [Suspect]
     Dosage: UNKNOWN
     Route: 048
  4. THEOPHYLLINE [Suspect]
  5. RISPERDAL [Suspect]
  6. TORSEMIDE [Suspect]
     Dosage: UNKNOWN
     Route: 048
  7. VIANI [Suspect]
     Dosage: UNKNOWN
     Route: 048
  8. CIPRAMIL [Suspect]
  9. NEUROCIL [Suspect]

REACTIONS (2)
  - LEFT VENTRICULAR FAILURE [None]
  - SMALL INTESTINAL PERFORATION [None]
